FAERS Safety Report 8565586 (Version 7)
Quarter: 2013Q1

REPORT INFORMATION
  Report Type: Spontaneous
  Country: US (occurrence: US)
  Receive Date: 20120516
  Receipt Date: 20130207
  Transmission Date: 20140127
  Serious: Yes (Hospitalization)
  Sender: FDA-Public Use
  Company Number: US-GLAXOSMITHKLINE-A0933117A

PATIENT
  Age: 45 Year
  Sex: Male
  Weight: 157.7 kg

DRUGS (1)
  1. AVANDIA [Suspect]
     Indication: DIABETES MELLITUS
     Dosage: 8MG PER DAY
     Route: 048
     Dates: start: 20021102, end: 20051130

REACTIONS (4)
  - Angina unstable [Not Recovered/Not Resolved]
  - Myocardial infarction [Unknown]
  - Arterial occlusive disease [Unknown]
  - Weight increased [Unknown]
